FAERS Safety Report 7603393-7 (Version None)
Quarter: 2011Q3

REPORT INFORMATION
  Report Type: 
  Country: None (occurrence: None)
  Receive Date: 20110712
  Receipt Date: 20110708
  Transmission Date: 20111222
  Serious: Yes (Death)
  Sender: FDA-Public Use
  Company Number: PHHY2011CA53791

PATIENT
  Sex: Male

DRUGS (4)
  1. VALIUM [Concomitant]
     Dosage: 5 MG, BID
  2. EPUSAL [Concomitant]
  3. CLOZAPINE [Suspect]
     Indication: SCHIZOPHRENIA
     Dosage: 100 MG, UNK
     Dates: start: 20080301
  4. DALMANE [Concomitant]

REACTIONS (2)
  - LOSS OF CONSCIOUSNESS [None]
  - CARDIO-RESPIRATORY ARREST [None]
